FAERS Safety Report 14862115 (Version 1)
Quarter: 2018Q2

REPORT INFORMATION
  Report Type: Spontaneous
  Country: US (occurrence: US)
  Receive Date: 20180508
  Receipt Date: 20180508
  Transmission Date: 20180711
  Serious: Yes (Death, Hospitalization)
  Sender: FDA-Public Use
  Company Number: US-ENDO PHARMACEUTICALS INC-201410103

PATIENT
  Age: 53 Year
  Sex: Male
  Weight: 108.84 kg

DRUGS (3)
  1. TESTIM [Suspect]
     Active Substance: TESTOSTERONE
     Indication: FATIGUE
  2. TESTIM [Suspect]
     Active Substance: TESTOSTERONE
     Indication: BLOOD TESTOSTERONE DECREASED
     Dosage: UNK UNKNOWN, UNKNOWN
     Route: 062
     Dates: start: 20050805, end: 201210
  3. TESTIM [Suspect]
     Active Substance: TESTOSTERONE
     Indication: ASTHENIA

REACTIONS (3)
  - Cardio-respiratory arrest [Fatal]
  - Pulmonary embolism [Fatal]
  - Chest pain [Fatal]

NARRATIVE: CASE EVENT DATE: 20121008
